FAERS Safety Report 19183064 (Version 1)
Quarter: 2021Q2

REPORT INFORMATION
  Report Type: Spontaneous
  Country: FR (occurrence: FR)
  Receive Date: 20210427
  Receipt Date: 20210427
  Transmission Date: 20210717
  Serious: Yes (Hospitalization, Other)
  Sender: FDA-Public Use
  Company Number: FR-TEVA-2021-FR-1904124

PATIENT
  Age: 72 Year
  Sex: Male
  Weight: 91 kg

DRUGS (9)
  1. KYMRIAH [Suspect]
     Active Substance: TISAGENLECLEUCEL
     Indication: DIFFUSE LARGE B-CELL LYMPHOMA
     Dosage: DISPERSION FOR INFUSION , 1.2 MU
     Route: 042
     Dates: start: 20210303, end: 20210303
  2. VALACICLOVIR [Concomitant]
     Active Substance: VALACYCLOVIR HYDROCHLORIDE
  3. PENTASA 2 G, GRANULES EN SACHET?DOSE [Concomitant]
     Dosage: GRANULES IN SACHET?DOSE
  4. BACTRIM [Concomitant]
     Active Substance: SULFAMETHOXAZOLE\TRIMETHOPRIM
  5. TELMISARTAN/HYDROCHLOROTHIAZIDE SANDOZ 80 MG/25 MG, COMPRIME [Concomitant]
  6. FLUDARABINE TEVA 25 MG/ML, SOLUTION A DILUER POUR INJECTABLE OU PERFUS [Suspect]
     Active Substance: FLUDARABINE PHOSPHATE
     Indication: BONE MARROW CONDITIONING REGIMEN
     Dosage: CONCENTRATE FOR SOLUTION FOR INJECTION OR INFUSION , 50 MG
     Route: 042
     Dates: start: 20210226, end: 20210228
  7. FOLINORAL 25 MG, GELULE [Concomitant]
     Active Substance: LEUCOVORIN CALCIUM
  8. ENDOXAN 1000 MG, LYOPHILISAT POUR SOLUTION INJECTABLE [Suspect]
     Active Substance: CYCLOPHOSPHAMIDE
     Indication: BONE MARROW CONDITIONING REGIMEN
     Dosage: LYOPHILISATE FOR SOLUTION FOR INJECTION , 500 MG
     Route: 042
     Dates: start: 20210226, end: 20210228
  9. NEBIVOLOL EG 5 MG, COMPRIME QUADRISECABLE [Concomitant]
     Active Substance: NEBIVOLOL HYDROCHLORIDE
     Dosage: FOUR?BREAKABLE TABLET

REACTIONS (2)
  - Neutropenia [Recovered/Resolved]
  - Cytokine release syndrome [Recovered/Resolved]

NARRATIVE: CASE EVENT DATE: 20210304
